FAERS Safety Report 15990296 (Version 1)
Quarter: 2019Q1

REPORT INFORMATION
  Report Type: Spontaneous
  Country: KR (occurrence: KR)
  Receive Date: 20190221
  Receipt Date: 20190221
  Transmission Date: 20190418
  Serious: Yes (Hospitalization, Disabling)
  Sender: FDA-Public Use
  Company Number: KR-GUERBET-KR-20190004

PATIENT
  Age: 54 Year
  Sex: Male

DRUGS (3)
  1. LIPIODOL [Suspect]
     Active Substance: ETHIODIZED OIL
     Indication: THERAPEUTIC EMBOLISATION
     Route: 065
  2. N-BUTYL-2-CYANOACRYLATE [Suspect]
     Active Substance: UNSPECIFIED INGREDIENT
     Indication: THERAPEUTIC EMBOLISATION
     Route: 065
  3. N-BUTYL-2-CYANOACRYLATE [Suspect]
     Active Substance: UNSPECIFIED INGREDIENT
     Route: 065

REACTIONS (4)
  - Product use in unapproved indication [Recovered/Resolved with Sequelae]
  - Osteoarthritis [Recovered/Resolved with Sequelae]
  - Cerebral infarction [Recovered/Resolved with Sequelae]
  - Myocardial infarction [Recovered/Resolved]
